FAERS Safety Report 9959035 (Version 1)
Quarter: 2014Q1

REPORT INFORMATION
  Report Type: Spontaneous
  Country: US (occurrence: US)
  Receive Date: 20140305
  Receipt Date: 20140305
  Transmission Date: 20141002
  Serious: No
  Sender: FDA-Public Use
  Company Number: US-ABBVIE-13P-163-1102487-00

PATIENT
  Sex: Female
  Weight: 54.48 kg

DRUGS (8)
  1. HUMIRA [Suspect]
     Indication: JUVENILE IDIOPATHIC ARTHRITIS
     Route: 058
     Dates: start: 20130531
  2. ZYRTEC [Concomitant]
     Indication: MULTIPLE ALLERGIES
  3. FLORINEF [Concomitant]
     Indication: POSTURAL ORTHOSTATIC TACHYCARDIA SYNDROME
  4. MIDODRINE [Concomitant]
     Indication: POSTURAL ORTHOSTATIC TACHYCARDIA SYNDROME
  5. NORTELOL [Concomitant]
     Indication: ACNE
  6. NUVIGIL [Concomitant]
     Indication: FATIGUE
  7. FLUORIDE [Concomitant]
     Indication: SUPPLEMENTATION THERAPY
  8. SPIRONOLACTONE [Concomitant]
     Indication: ACNE

REACTIONS (3)
  - Headache [Recovered/Resolved]
  - Headache [Recovered/Resolved]
  - Back pain [Recovered/Resolved]
